FAERS Safety Report 4701644-X (Version None)
Quarter: 2005Q2

REPORT INFORMATION
  Report Type: 
  Country: None (occurrence: None)
  Receive Date: 20050627
  Receipt Date: 20050616
  Transmission Date: 20051028
  Serious: Yes (Other)
  Sender: FDA-Public Use
  Company Number: 2005089882

PATIENT
  Age: 79 Year
  Sex: Male

DRUGS (6)
  1. ZOLOFT [Suspect]
     Indication: PAIN
     Dosage: 50 MG (50 MG, 1 IN 1 D)
     Dates: start: 20050608, end: 20050610
  2. TRAMADOL HCL [Concomitant]
  3. NORDAZ (NORDAZEPAM) [Concomitant]
  4. BETA BLOCKING AGENTS (BETA BLOCKING AGENTS) [Concomitant]
  5. FENOFIBRATE [Concomitant]
  6. NOVONORM (REPAGLINIDE) [Concomitant]

REACTIONS (3)
  - DEHYDRATION [None]
  - DYSENTERY [None]
  - WEIGHT DECREASED [None]
